FAERS Safety Report 7794861-6 (Version None)
Quarter: 2011Q4

REPORT INFORMATION
  Report Type: 
  Country: None (occurrence: None)
  Receive Date: 20111004
  Receipt Date: 20110926
  Transmission Date: 20120403
  Serious: Yes (Other)
  Sender: FDA-Public Use
  Company Number: PHHY2010MX64301

PATIENT
  Sex: Female

DRUGS (4)
  1. EXFORGE [Concomitant]
     Dosage: UNK
  2. GALVUS MET [Concomitant]
     Dosage: UNK
  3. PAROXETINE HCL [Concomitant]
     Indication: SLEEP DISORDER
     Dosage: UNK
  4. RASILEZ HCT [Suspect]
     Indication: HYPERTENSION
     Dosage: 1 DF, DAILY
     Route: 048
     Dates: end: 20100909

REACTIONS (5)
  - DEHYDRATION [None]
  - SKELETAL INJURY [None]
  - SYNCOPE [None]
  - BLOOD PRESSURE INADEQUATELY CONTROLLED [None]
  - DECREASED APPETITE [None]
